FAERS Safety Report 10229993 (Version 1)
Quarter: 2014Q2

REPORT INFORMATION
  Report Type: Spontaneous
  Country: DE (occurrence: DE)
  Receive Date: 20140611
  Receipt Date: 20140611
  Transmission Date: 20141212
  Serious: Yes (Other)
  Sender: FDA-Public Use
  Company Number: DE-PFIZER INC-2014156444

PATIENT
  Sex: Female

DRUGS (1)
  1. AROMASIN [Suspect]

REACTIONS (2)
  - Optic nerve disorder [Unknown]
  - Visual impairment [Unknown]
